FAERS Safety Report 4690909-6 (Version None)
Quarter: 2005Q2

REPORT INFORMATION
  Report Type: 
  Country: None (occurrence: None)
  Receive Date: 20050613
  Receipt Date: 20050525
  Transmission Date: 20051028
  Serious: Yes (Hospitalization)
  Sender: FDA-Public Use
  Company Number: 2005BH000074

PATIENT
  Age: 26 Year
  Sex: Female
  Weight: 89.3586 kg

DRUGS (3)
  1. SODIUM CITRATE [Suspect]
     Dosage: ONCE; IV
     Route: 042
     Dates: start: 20050520, end: 20050520
  2. 0.9% SODIUM CHLORIDE INJECTION IN PLASTIC CONTAINER [Suspect]
     Dosage: ONCE; IV
     Route: 042
     Dates: start: 20050520, end: 20050520
  3. SYNTHROID [Concomitant]

REACTIONS (1)
  - SEPSIS [None]
